FAERS Safety Report 12618030 (Version 1)
Quarter: 2016Q3

REPORT INFORMATION
  Report Type: Report from Study
  Country: US (occurrence: US)
  Receive Date: 20160803
  Receipt Date: 20160803
  Transmission Date: 20161109
  Serious: Yes (Other)
  Sender: FDA-Public Use
  Company Number: US-ROCHE-772094

PATIENT
  Age: 59 Year
  Sex: Female
  Weight: 53 kg

DRUGS (12)
  1. CLONAZEPAM. [Concomitant]
     Active Substance: CLONAZEPAM
     Route: 048
  2. METHADONE [Concomitant]
     Active Substance: METHADONE HYDROCHLORIDE
     Route: 065
  3. VISMODEGIB [Suspect]
     Active Substance: VISMODEGIB
     Dosage: COURSE 4
     Route: 048
  4. VISMODEGIB [Suspect]
     Active Substance: VISMODEGIB
     Indication: BASAL CELL CARCINOMA
     Dosage: TOTAL DOSE: 2250 MG, LAST DOSE PRIOR TO SAE ON 24 MARCH 2010?LAST DOSE RECEIVED ON 26/MAY/2010?COURS
     Route: 048
  5. VISMODEGIB [Suspect]
     Active Substance: VISMODEGIB
     Dosage: COURSE 3
     Route: 048
  6. GABAPENTIN. [Concomitant]
     Active Substance: GABAPENTIN
     Route: 048
  7. BACLOFEN. [Concomitant]
     Active Substance: BACLOFEN
     Dosage: FREQUENCY: QHS
     Route: 065
  8. METOPROLOL. [Concomitant]
     Active Substance: METOPROLOL
     Route: 065
  9. VISMODEGIB [Suspect]
     Active Substance: VISMODEGIB
     Dosage: COURSE 2
     Route: 048
  10. LEXAPRO [Concomitant]
     Active Substance: ESCITALOPRAM OXALATE
     Route: 065
  11. NITROGLYCERINE [Concomitant]
     Active Substance: NITROGLYCERIN
  12. PLAVIX [Concomitant]
     Active Substance: CLOPIDOGREL BISULFATE

REACTIONS (3)
  - Neutrophil count decreased [Unknown]
  - Anaemia [Unknown]
  - White blood cell count decreased [Recovering/Resolving]

NARRATIVE: CASE EVENT DATE: 20100324
